FAERS Safety Report 10501189 (Version 1)
Quarter: 2014Q4

REPORT INFORMATION
  Report Type: Spontaneous
  Country: US (occurrence: None)
  Receive Date: 20141006
  Receipt Date: 20141006
  Transmission Date: 20150528
  Serious: Yes (Death)
  Sender: FDA-Public Use
  Company Number: None

PATIENT
  Age: 17 Year
  Sex: Male
  Weight: 70 kg

DRUGS (2)
  1. NORTRIPTYLINE [Suspect]
     Active Substance: NORTRIPTYLINE
     Indication: DEPRESSION
     Dates: end: 20140731
  2. NORTRIPTYLINE [Suspect]
     Active Substance: NORTRIPTYLINE
     Indication: SUICIDAL IDEATION
     Dates: end: 20140731

REACTIONS (2)
  - Completed suicide [None]
  - Gun shot wound [None]

NARRATIVE: CASE EVENT DATE: 20140731
